FAERS Safety Report 11704673 (Version 1)
Quarter: 2015Q4

REPORT INFORMATION
  Report Type: Spontaneous
  Country: GB (occurrence: GB)
  Receive Date: 20151106
  Receipt Date: 20151106
  Transmission Date: 20160304
  Serious: Yes (Disabling)
  Sender: FDA-Public Use
  Company Number: PHFR2015GB008441

PATIENT
  Age: 63 Year
  Sex: Female
  Weight: 66 kg

DRUGS (2)
  1. SEEBRI BREEZHALER [Suspect]
     Active Substance: GLYCOPYRROLATE
     Indication: CHRONIC OBSTRUCTIVE PULMONARY DISEASE
     Dosage: 44 UG, UNK
     Route: 055
     Dates: start: 20150723, end: 20151023
  2. SALBUTAMOL [Concomitant]
     Active Substance: ALBUTEROL
     Indication: PRODUCT USED FOR UNKNOWN INDICATION
     Dosage: 100 UG, UNK
     Route: 065

REACTIONS (2)
  - Constipation [Recovering/Resolving]
  - Gastrooesophageal reflux disease [Recovering/Resolving]
